FAERS Safety Report 6217949-X (Version None)
Quarter: 2009Q2

REPORT INFORMATION
  Report Type: 
  Country: None (occurrence: None)
  Receive Date: 20090608
  Receipt Date: 20090528
  Transmission Date: 20091009
  Serious: Yes (Life-Threatening, Hospitalization, Other)
  Sender: FDA-Public Use
  Company Number: JP-TEVA-192272USA

PATIENT
  Sex: Male

DRUGS (7)
  1. BISOPROLOL FUMARATE [Suspect]
     Indication: CARDIAC FAILURE
     Route: 048
     Dates: start: 20090310, end: 20090311
  2. BISOPROLOL FUMARATE [Suspect]
     Indication: TACHYCARDIA
  3. BISOPROLOL FUMARATE [Concomitant]
  4. VERAPAMIL HYDROCHLORIDE [Suspect]
     Indication: TACHYCARDIA
     Route: 048
     Dates: start: 20090307, end: 20090311
  5. FUROSEMIDE [Concomitant]
     Route: 048
     Dates: start: 20090307, end: 20090311
  6. SELARA [Concomitant]
     Route: 048
     Dates: start: 20090307, end: 20090311
  7. WARFARIN POTASSIUM [Concomitant]
     Route: 048
     Dates: start: 20090307, end: 20090311

REACTIONS (2)
  - HEPATIC CONGESTION [None]
  - SHOCK [None]
